FAERS Safety Report 6149581-0 (Version None)
Quarter: 2009Q2

REPORT INFORMATION
  Report Type: 
  Country: None (occurrence: None)
  Receive Date: 20090409
  Receipt Date: 20090331
  Transmission Date: 20091009
  Serious: Yes (Hospitalization)
  Sender: FDA-Public Use
  Company Number: GB-PURDUE-GBR_2009_0005003

PATIENT
  Age: 64 Year
  Sex: Female

DRUGS (4)
  1. OXYCONTIN [Suspect]
     Indication: PAIN
     Dosage: 10 MG, BID
     Route: 048
     Dates: start: 20090217, end: 20090220
  2. BETAHISTINE [Concomitant]
     Indication: VERTIGO
     Dosage: 16 MG, DAILY
     Route: 048
  3. GABAPENTIN [Concomitant]
     Indication: PAIN
     Dosage: 300 MG, UNK
     Route: 048
     Dates: start: 20090217, end: 20090220
  4. TINZAPARIN [Concomitant]
     Indication: THROMBOSIS PROPHYLAXIS
     Dosage: 4500 IU, UNK
     Route: 058
     Dates: start: 20090216

REACTIONS (3)
  - ERYTHEMA [None]
  - PALLOR [None]
  - RASH [None]
